FAERS Safety Report 11668647 (Version 2)
Quarter: 2015Q4

REPORT INFORMATION
  Report Type: Spontaneous
  Country: FR (occurrence: FR)
  Receive Date: 20151027
  Receipt Date: 20151027
  Transmission Date: 20160304
  Serious: Yes (Hospitalization)
  Sender: FDA-Public Use
  Company Number: FR-SA-2015SA163182

PATIENT
  Age: 72 Year
  Sex: Female

DRUGS (12)
  1. SERTRALINE [Suspect]
     Active Substance: SERTRALINE HYDROCHLORIDE
     Indication: DEPRESSION
     Route: 048
     Dates: end: 201508
  2. APROVEL [Suspect]
     Active Substance: IRBESARTAN
     Indication: HYPERTENSION
     Route: 048
     Dates: end: 20150924
  3. NORSET [Suspect]
     Active Substance: MIRTAZAPINE
     Indication: DEPRESSION
     Route: 048
     Dates: start: 201508, end: 20150924
  4. AMLODIPINE [Concomitant]
     Active Substance: AMLODIPINE BESYLATE
     Route: 065
  5. OLANZAPINE. [Suspect]
     Active Substance: OLANZAPINE
     Route: 048
     Dates: start: 201508, end: 20150924
  6. ANAFRANIL [Suspect]
     Active Substance: CLOMIPRAMINE HYDROCHLORIDE
     Indication: DEPRESSION
     Route: 048
     Dates: start: 201508, end: 20150924
  7. KALEORID [Concomitant]
     Active Substance: POTASSIUM CHLORIDE
     Route: 065
  8. BROMAZEPAM [Concomitant]
     Active Substance: BROMAZEPAM
     Route: 065
  9. ATARAX [Suspect]
     Active Substance: HYDROXYZINE\HYDROXYZINE HYDROCHLORIDE
     Indication: DEPRESSION
     Route: 048
     Dates: start: 201508, end: 20150924
  10. PARKINANE [Suspect]
     Active Substance: TRIHEXYPHENIDYL HYDROCHLORIDE
     Indication: DEPRESSION
     Route: 048
     Dates: start: 201508, end: 20150924
  11. LEVOTHYROX [Concomitant]
     Active Substance: LEVOTHYROXINE
     Route: 065
  12. ZOLPIDEM [Concomitant]
     Active Substance: ZOLPIDEM\ZOLPIDEM TARTRATE
     Route: 065

REACTIONS (2)
  - Inappropriate antidiuretic hormone secretion [Recovered/Resolved]
  - Hyponatraemia [Recovered/Resolved]

NARRATIVE: CASE EVENT DATE: 2015
